FAERS Safety Report 20595193 (Version 1)
Quarter: 2022Q1

REPORT INFORMATION
  Report Type: Spontaneous
  Country: US (occurrence: None)
  Receive Date: 20220314
  Receipt Date: 20220314
  Transmission Date: 20220423
  Serious: No
  Sender: FDA-Public Use
  Company Number: None

PATIENT
  Age: 75 Year
  Sex: Female

DRUGS (1)
  1. CAPECITABINE [Suspect]
     Active Substance: CAPECITABINE
     Indication: Colon cancer
     Dosage: FREQUENCY : TWICE A DAY;?
     Route: 048
     Dates: start: 20220119

REACTIONS (5)
  - Diarrhoea [None]
  - Nausea [None]
  - Blood potassium decreased [None]
  - Gait disturbance [None]
  - Loss of consciousness [None]

NARRATIVE: CASE EVENT DATE: 20220307
